FAERS Safety Report 8961216 (Version 1)
Quarter: 2012Q4

REPORT INFORMATION
  Report Type: Report from Study
  Country: CA (occurrence: CA)
  Receive Date: 20121212
  Receipt Date: 20121212
  Transmission Date: 20130627
  Serious: Yes (Other)
  Sender: FDA-Public Use
  Company Number: CA-JNJFOC-20121201558

PATIENT
  Age: 39 None
  Sex: Female
  Weight: 69.5 kg

DRUGS (9)
  1. REMICADE [Suspect]
     Indication: CROHN^S DISEASE
     Route: 042
     Dates: start: 20120329
  2. REMICADE [Suspect]
     Indication: CROHN^S DISEASE
     Route: 042
     Dates: start: 20121130
  3. CIPRALEX [Concomitant]
     Route: 065
  4. LORAZEPAM [Concomitant]
     Route: 065
  5. ZOPICLONE [Concomitant]
     Route: 065
  6. VALTREX [Concomitant]
     Route: 065
  7. WELLBUTRIN [Concomitant]
     Route: 065
  8. VENTOLIN [Concomitant]
     Route: 065
  9. NASONEX [Concomitant]
     Route: 065

REACTIONS (11)
  - Pharyngitis streptococcal [Recovered/Resolved]
  - Urticaria [Unknown]
  - Rash pruritic [Unknown]
  - Joint stiffness [Unknown]
  - Infusion related reaction [Unknown]
  - Diarrhoea [Unknown]
  - Muscle spasms [Unknown]
  - Migraine [Unknown]
  - Arthralgia [Unknown]
  - Stomatitis [Recovered/Resolved]
  - Herpes zoster [Unknown]
